FAERS Safety Report 5150319-4 (Version None)
Quarter: 2006Q4

REPORT INFORMATION
  Report Type: 
  Country: None (occurrence: None)
  Receive Date: 20061108
  Receipt Date: 20061027
  Transmission Date: 20070319
  Serious: Yes (Death, Hospitalization)
  Sender: FDA-Public Use
  Company Number: 2006087973

PATIENT
  Age: 53 Year
  Sex: Male

DRUGS (8)
  1. SUTENT [Suspect]
     Indication: METASTATIC RENAL CELL CARCINOMA
     Dosage: 50 MG (50 MG, 1 IN 1 D); ORAL
     Route: 048
     Dates: start: 20060216, end: 20060717
  2. MORPHINE [Concomitant]
  3. DIMETICONE [Concomitant]
  4. ENOXAPARIN SODIUM [Concomitant]
  5. RABEPRAZOLE SODIUM [Concomitant]
  6. FUROSEMIDE [Concomitant]
  7. LERCANIDIPINE [Concomitant]
  8. LEVOTHYROXINE SODIUM [Concomitant]

REACTIONS (8)
  - BLOOD ALKALINE PHOSPHATASE INCREASED [None]
  - BLOOD CREATININE INCREASED [None]
  - BLOOD POTASSIUM INCREASED [None]
  - GAMMA-GLUTAMYLTRANSFERASE INCREASED [None]
  - GLOMERULAR FILTRATION RATE DECREASED [None]
  - HAEMOGLOBIN DECREASED [None]
  - LOSS OF CONSCIOUSNESS [None]
  - SEPSIS [None]
